FAERS Safety Report 6554434-X (Version None)
Quarter: 2010Q1

REPORT INFORMATION
  Report Type: 
  Country: None (occurrence: None)
  Receive Date: 20100127
  Receipt Date: 20100125
  Transmission Date: 20100710
  Serious: Yes (Life-Threatening, Hospitalization)
  Sender: FDA-Public Use
  Company Number: GXKR2009DE10246

PATIENT
  Age: 76 Year
  Sex: Male
  Weight: 85 kg

DRUGS (9)
  1. ACETYLSALICYLIC ACID SRT [Suspect]
     Indication: CORONARY ARTERY DISEASE
     Dosage: 100 MG, QD
     Route: 048
     Dates: start: 20090311
  2. XIPAMIDE (NGX) [Interacting]
     Indication: HYPERTENSION
     Dosage: 10 MG, Q96H
     Route: 048
     Dates: start: 20090311
  3. IBUPROFEN (NGX) [Interacting]
     Indication: PAIN
     Dosage: 800 MG, BID
     Route: 048
     Dates: start: 20090311, end: 20090624
  4. PROTAPHANE MC [Concomitant]
  5. OMEPRAZOLE [Concomitant]
     Indication: PROPHYLAXIS AGAINST GASTROINTESTINAL ULCER
  6. METFORMIN HCL [Concomitant]
  7. DIGITOXIN INJ [Concomitant]
  8. BISOPROLOL FUMARATE [Concomitant]
  9. ACTRAPID INNOLET [Concomitant]

REACTIONS (1)
  - RENAL FAILURE ACUTE [None]
